FAERS Safety Report 13117376 (Version 1)
Quarter: 2017Q1

REPORT INFORMATION
  Report Type: Spontaneous
  Country: PL (occurrence: PL)
  Receive Date: 20170116
  Receipt Date: 20170116
  Transmission Date: 20170428
  Serious: Yes (Other)
  Sender: FDA-Public Use
  Company Number: PL-B. BRAUN MEDICAL INC.-1062040

PATIENT
  Age: 47 Year
  Sex: Male
  Weight: 101 kg

DRUGS (2)
  1. SODIUM CHLORIDE INJECTIONS USP 0264-7800-00 0264-7800-10 [Suspect]
     Active Substance: SODIUM CHLORIDE
     Indication: CARDIAC FAILURE
     Dates: start: 20140609, end: 20140609
  2. DEXTROSE, SODIUM CHLORIDE, AND POTASSIUM CHLORIDE [Suspect]
     Active Substance: DEXTROSE\POTASSIUM CHLORIDE\SODIUM CHLORIDE
     Route: 042
     Dates: start: 20140609, end: 20140609

REACTIONS (4)
  - Dyspnoea [Recovered/Resolved]
  - Cyanosis [Recovered/Resolved]
  - Pyrexia [Recovered/Resolved]
  - Chills [Recovered/Resolved]

NARRATIVE: CASE EVENT DATE: 20140609
